FAERS Safety Report 5692753-X (Version None)
Quarter: 2008Q2

REPORT INFORMATION
  Report Type: 
  Country: None (occurrence: None)
  Receive Date: 20080401
  Receipt Date: 20080313
  Transmission Date: 20081010
  Serious: Yes (Hospitalization, Disabling)
  Sender: FDA-Public Use
  Company Number: 2008S1004181

PATIENT
  Age: 78 Year
  Sex: Female

DRUGS (10)
  1. COTRIMOXAZOLE [Suspect]
     Indication: CITROBACTER INFECTION
     Dosage: ;TWICE A DAY;
     Dates: start: 20070702, end: 20070706
  2. TRIMETHOPRIM [Suspect]
     Indication: URINARY TRACT INFECTION
     Dosage: 100 MG;DAILY
     Dates: start: 20000701
  3. FAMOTIDINE [Suspect]
     Indication: GASTROOESOPHAGEAL REFLUX DISEASE
     Dosage: 40 MG;DAILY;
  4. MEMANTINE HCL [Suspect]
     Indication: DEMENTIA ALZHEIMER'S TYPE
     Dosage: 10 MG;TWICE A DAY; : 15 MG;AT BEDTIME;
     Dates: start: 20060701
  5. MEMANTINE HCL [Suspect]
     Indication: DEMENTIA ALZHEIMER'S TYPE
     Dosage: 10 MG;TWICE A DAY; : 15 MG;AT BEDTIME;
     Dates: start: 20060701
  6. PAROXETINE HCL [Concomitant]
  7. ATORVASTATIN [Concomitant]
  8. PRINZIDE [Concomitant]
  9. DONEPEZIL HCL [Concomitant]
  10. CIPROFLOXACIN [Concomitant]

REACTIONS (27)
  - AGGRESSION [None]
  - AGITATION [None]
  - BALANCE DISORDER [None]
  - CEREBRAL ATROPHY [None]
  - CEREBRAL ISCHAEMIA [None]
  - CITROBACTER INFECTION [None]
  - CONDITION AGGRAVATED [None]
  - CONFUSIONAL STATE [None]
  - CONSTIPATION [None]
  - DELIRIUM [None]
  - DEMENTIA ALZHEIMER'S TYPE [None]
  - DRUG INTOLERANCE [None]
  - FAILURE TO THRIVE [None]
  - FALL [None]
  - GAIT DISTURBANCE [None]
  - GASTROOESOPHAGEAL REFLUX DISEASE [None]
  - GENERAL PHYSICAL HEALTH DETERIORATION [None]
  - HALLUCINATION [None]
  - HYPERTENSION [None]
  - MENTAL IMPAIRMENT [None]
  - MUCOUS MEMBRANE DISORDER [None]
  - MUSCLE TWITCHING [None]
  - MYOCLONUS [None]
  - RESTLESS LEGS SYNDROME [None]
  - SOMNOLENCE [None]
  - TREMOR [None]
  - URINARY TRACT INFECTION [None]
